FAERS Safety Report 5011400-3 (Version None)
Quarter: 2006Q2

REPORT INFORMATION
  Report Type: 
  Country: None (occurrence: None)
  Receive Date: 20060404
  Receipt Date: 20051108
  Transmission Date: 20061013
  Serious: No
  Sender: FDA-Public Use
  Company Number: US_0511123856

PATIENT
  Age: 71 Year
  Sex: Female

DRUGS (3)
  1. CYMBALTA [Suspect]
     Indication: ARTHRALGIA
     Dosage: 30 MG, DAILY (1/D)
     Dates: start: 20051108
  2. XANAX [Concomitant]
  3. VOLTAREN                /SCH/ (DICLOFENAC POTASSIUM) [Concomitant]

REACTIONS (4)
  - ANOREXIA [None]
  - DIARRHOEA [None]
  - FEELING ABNORMAL [None]
  - NAUSEA [None]
